FAERS Safety Report 6419103-5 (Version None)
Quarter: 2009Q4

REPORT INFORMATION
  Report Type: 
  Country: None (occurrence: None)
  Receive Date: 20091028
  Receipt Date: 20091028
  Transmission Date: 20100525
  Serious: No
  Sender: FDA-Public Use
  Company Number: None

PATIENT
  Age: 57 Year
  Sex: Female
  Weight: 63.5036 kg

DRUGS (1)
  1. EFFEXOR XR [Suspect]
     Indication: MENOPAUSAL DEPRESSION
     Dosage: 112.5MG DAILY PO
     Route: 048
     Dates: start: 20070201, end: 20090901

REACTIONS (1)
  - ALOPECIA [None]
